FAERS Safety Report 4716929-0 (Version None)
Quarter: 2005Q3

REPORT INFORMATION
  Report Type: 
  Country: None (occurrence: None)
  Receive Date: 20050712
  Receipt Date: 20050331
  Transmission Date: 20060218
  Serious: Yes (Hospitalization)
  Sender: FDA-Public Use
  Company Number: PHEH2005US03808

PATIENT
  Age: 69 Year
  Sex: Female

DRUGS (7)
  1. GLEEVEC [Suspect]
     Indication: MYELOFIBROSIS
     Dosage: 600 MG, QD, ORAL
     Route: 048
     Dates: start: 20040801
  2. LISINOPRIL [Concomitant]
  3. LEVOTHYROXINE SODIUM [Concomitant]
  4. PROTONIX [Concomitant]
  5. CARDIZEM CD [Concomitant]
  6. ATENOLOL [Concomitant]
  7. LASIX [Concomitant]

REACTIONS (6)
  - ASTHENIA [None]
  - GASTROINTESTINAL HAEMORRHAGE [None]
  - HAEMATOCRIT DECREASED [None]
  - HAEMOGLOBIN DECREASED [None]
  - PALPITATIONS [None]
  - WHITE BLOOD CELL COUNT DECREASED [None]
